FAERS Safety Report 15030260 (Version 1)
Quarter: 2018Q2

REPORT INFORMATION
  Report Type: Spontaneous
  Country: US (occurrence: US)
  Receive Date: 20180619
  Receipt Date: 20180619
  Transmission Date: 20180711
  Serious: Yes (Life-Threatening, Hospitalization, Other)
  Sender: FDA-Public Use
  Company Number: US-PFIZER INC-2018246827

PATIENT
  Age: 60 Year
  Sex: Female
  Weight: 45 kg

DRUGS (1)
  1. GABAPENTIN. [Suspect]
     Active Substance: GABAPENTIN
     Indication: PAIN
     Dates: start: 2014, end: 2014

REACTIONS (7)
  - Product use in unapproved indication [Unknown]
  - Weight decreased [Unknown]
  - Feeding disorder [Unknown]
  - Tongue neoplasm malignant stage unspecified [Recovered/Resolved with Sequelae]
  - Dysphagia [Unknown]
  - Respiratory arrest [Unknown]
  - Speech disorder [Unknown]

NARRATIVE: CASE EVENT DATE: 2014
